FAERS Safety Report 6310822-8 (Version None)
Quarter: 2009Q3

REPORT INFORMATION
  Report Type: 
  Country: None (occurrence: None)
  Receive Date: 20090812
  Receipt Date: 20090804
  Transmission Date: 20100115
  Serious: Yes (Other)
  Sender: FDA-Public Use
  Company Number: ALL1-2009-02169

PATIENT
  Age: 89 Year
  Sex: Female
  Weight: 61.7 kg

DRUGS (5)
  1. LIALDA [Suspect]
     Indication: COLITIS COLLAGENOUS
     Dosage: 1.2 G, 1X/DAY;QD, ORAL
     Route: 048
     Dates: start: 20090601, end: 20090601
  2. HYDROCHLOROTHIAZIDE [Concomitant]
  3. SINGULAIR            /01362601/(MONTELUKAST) [Concomitant]
  4. ATROVENT           (IPRATROPIUM BROMIDE) INHALATION GAS [Concomitant]
  5. ASPIRIN [Concomitant]

REACTIONS (10)
  - CONFUSIONAL STATE [None]
  - DISORIENTATION [None]
  - DYSGEUSIA [None]
  - EATING DISORDER SYMPTOM [None]
  - MUSCULAR WEAKNESS [None]
  - NAUSEA [None]
  - OFF LABEL USE [None]
  - RETCHING [None]
  - SOMNOLENCE [None]
  - WEIGHT DECREASED [None]
